FAERS Safety Report 9596183 (Version 2)
Quarter: 2013Q4

REPORT INFORMATION
  Report Type: Report from Study
  Country: SN (occurrence: SN)
  Receive Date: 20131004
  Receipt Date: 20131031
  Transmission Date: 20140711
  Serious: Yes (Death, Other)
  Sender: FDA-Public Use
  Company Number: SN-GILEAD-2013-0084734

PATIENT
  Age: 5 Day
  Sex: Female
  Weight: .8 kg

DRUGS (4)
  1. EMTRICITABINE/TENOFOVIR DISOPROXIL FUMARATE [Suspect]
     Indication: HIV INFECTION
     Dosage: 1 DF, QD
     Route: 064
     Dates: end: 20130713
  2. LOPINAVIR + RITONAVIR [Suspect]
     Indication: HIV INFECTION
     Dosage: 1 DF, QD
     Route: 064
     Dates: end: 20130713
  3. NEVIRAPINE [Suspect]
     Indication: HIV INFECTION
     Dosage: UNK
     Route: 048
     Dates: start: 20130715, end: 20130719
  4. IRON [Concomitant]
     Indication: ANAEMIA
     Dosage: UNK
     Route: 064
     Dates: start: 20130606, end: 20130713

REACTIONS (1)
  - Death [Fatal]
